FAERS Safety Report 9178175 (Version 1)
Quarter: 2013Q1

REPORT INFORMATION
  Report Type: Spontaneous
  Country: IT (occurrence: IT)
  Receive Date: 20130321
  Receipt Date: 20130321
  Transmission Date: 20140127
  Serious: Yes (Disabling, Other)
  Sender: FDA-Public Use
  Company Number: IT-B.I. PHARMACEUTICALS,INC./RIDGEFIELD-2013-BI-06863GD

PATIENT
  Age: 51 Year
  Sex: Male

DRUGS (3)
  1. PRAMIPEXOLE [Suspect]
     Indication: PARKINSON^S DISEASE
     Dosage: 2.8 MG
  2. PRAMIPEXOLE [Suspect]
     Dosage: 3.15 MG
  3. LEVODOPA [Suspect]
     Indication: PARKINSON^S DISEASE
     Dosage: 700 MG

REACTIONS (8)
  - Dyskinesia [Unknown]
  - Dopamine dysregulation syndrome [Unknown]
  - On and off phenomenon [Unknown]
  - Anxiety [Unknown]
  - Depression [Unknown]
  - Intentional drug misuse [Unknown]
  - Drug abuse [Unknown]
  - Hypomania [Unknown]
